FAERS Safety Report 13332560 (Version 2)
Quarter: 2017Q2

REPORT INFORMATION
  Report Type: Spontaneous
  Country: ES (occurrence: ES)
  Receive Date: 20170314
  Receipt Date: 20170630
  Transmission Date: 20170830
  Serious: Yes (Death, Other)
  Sender: FDA-Public Use
  Company Number: ES-BAYER-2017-048231

PATIENT
  Age: 84 Year
  Sex: Female

DRUGS (10)
  1. ULTRAVIST [Suspect]
     Active Substance: IOPROMIDE
     Indication: COMPUTERISED TOMOGRAM PELVIS
  2. METAMIZOLE [Concomitant]
     Active Substance: METAMIZOLE
  3. ULTRAVIST [Suspect]
     Active Substance: IOPROMIDE
     Indication: COMPUTERISED TOMOGRAM THORAX
     Dosage: 120 ML, ONCE
     Dates: start: 20170307, end: 20170307
  4. LEVOTHYROXINE. [Concomitant]
     Active Substance: LEVOTHYROXINE
     Dosage: UNK
  5. AMLODIPINE [Concomitant]
     Active Substance: AMLODIPINE BESYLATE
     Dosage: UNK
  6. ACETAMINOPHEN. [Concomitant]
     Active Substance: ACETAMINOPHEN
  7. SIMVASTATIN. [Concomitant]
     Active Substance: SIMVASTATIN
  8. GASTROGRAFIN [Concomitant]
     Active Substance: DIATRIZOATE MEGLUMINE\DIATRIZOATE SODIUM
     Dosage: 30 ML, UNK
     Dates: start: 20170307
  9. LANSOPRAZOLE. [Concomitant]
     Active Substance: LANSOPRAZOLE
  10. ULTRAVIST [Suspect]
     Active Substance: IOPROMIDE
     Indication: COMPUTERISED TOMOGRAM ABDOMEN

REACTIONS (6)
  - Generalised erythema [Unknown]
  - Death [Fatal]
  - Loss of consciousness [Unknown]
  - Dyspnoea [Unknown]
  - Cyanosis [Unknown]
  - Pulse absent [Unknown]

NARRATIVE: CASE EVENT DATE: 20170307
